FAERS Safety Report 14615871 (Version 11)
Quarter: 2022Q3

REPORT INFORMATION
  Report Type: Report from Study
  Country: US (occurrence: None)
  Receive Date: 20180309
  Receipt Date: 20220718
  Transmission Date: 20221026
  Serious: Yes (Hospitalization)
  Sender: FDA-Public Use
  Company Number: US-ROCHE-2080627

PATIENT
  Age: 74 Year
  Sex: Female
  Weight: 52.1 kg

DRUGS (42)
  1. ATEZOLIZUMAB [Suspect]
     Active Substance: ATEZOLIZUMAB
     Indication: Ovarian cancer
     Dosage: MOST RECENT DOSE ON 16/FEB/2018
     Route: 042
     Dates: start: 20180105
  2. BEVACIZUMAB [Suspect]
     Active Substance: BEVACIZUMAB
     Indication: Ovarian cancer
     Dosage: ON 26/JAN/2018 WAS MOST RECENT DOSE OF BEVACIZUMAB PRIOR TO AE 829.5 MG
     Route: 042
     Dates: start: 20180105
  3. PACLITAXEL [Suspect]
     Active Substance: PACLITAXEL
     Indication: Ovarian cancer
     Dosage: ON 16/FEB/2018  WAS MOST RECENT DOSE OF PACLITAXEL ADMIN PRIOR AE (175 MG), LAST DOSE OF  PACLITAXEL
     Route: 042
     Dates: start: 20180105
  4. CARBOPLATIN [Suspect]
     Active Substance: CARBOPLATIN
     Indication: Ovarian cancer
     Dosage: MOST RECENT DOSE 385 MG ON 16/FEB/2018?AT A DOSE TO ACHIEVE A TARGET AREA UNDER THE CURVE (AUC) OF 6
     Route: 042
     Dates: start: 20180105
  5. ASPIRIN [Concomitant]
     Active Substance: ASPIRIN
     Indication: Prophylaxis
     Dates: start: 20180101
  6. OSCAL D [Concomitant]
     Active Substance: CALCIUM CARBONATE\CHOLECALCIFEROL
     Dates: start: 20180101
  7. TRICOR [Concomitant]
     Active Substance: FENOFIBRATE
     Indication: Blood cholesterol
     Dates: start: 20170701
  8. DIABETA (UNITED STATES) [Concomitant]
     Indication: Diabetes mellitus
     Dates: start: 20130101
  9. HYDROCHLOROTHIAZIDE\LISINOPRIL [Concomitant]
     Active Substance: HYDROCHLOROTHIAZIDE\LISINOPRIL
     Indication: Blood pressure measurement
     Dates: start: 20170101
  10. ATIVAN [Concomitant]
     Active Substance: LORAZEPAM
     Indication: Anxiety
     Dates: start: 20180101
  11. METFORMIN [Concomitant]
     Active Substance: METFORMIN HYDROCHLORIDE
     Indication: Diabetes mellitus
     Dates: start: 20170101
  12. TOPROL XL [Concomitant]
     Active Substance: METOPROLOL SUCCINATE
     Indication: Hypertension
     Dates: start: 20170101
  13. ZOFRAN [Concomitant]
     Active Substance: ONDANSETRON HYDROCHLORIDE
     Indication: Prophylaxis
     Dates: start: 20180106
  14. COMPAZINE [Concomitant]
     Active Substance: PROCHLORPERAZINE MALEATE
     Indication: Prophylaxis
     Dates: start: 20180106
  15. PHENERGAN [Concomitant]
     Active Substance: PROMETHAZINE HYDROCHLORIDE
     Indication: Prophylaxis
     Dates: start: 20180106
  16. VITAMIN B6 [Concomitant]
     Active Substance: PYRIDOXINE HYDROCHLORIDE
     Indication: Prophylaxis
     Dates: start: 20180106
  17. JANUVIA [Concomitant]
     Active Substance: SITAGLIPTIN PHOSPHATE
     Indication: Diabetes mellitus
     Dates: start: 20170101
  18. AMBIEN [Concomitant]
     Active Substance: ZOLPIDEM TARTRATE
     Indication: Insomnia
     Dates: start: 20170701
  19. XANAX [Concomitant]
     Active Substance: ALPRAZOLAM
     Indication: Anxiety
     Dates: start: 20180309
  20. MARINOL [Concomitant]
     Active Substance: DRONABINOL
     Indication: Nausea
     Dates: start: 20180309
  21. LOVENOX [Concomitant]
     Active Substance: ENOXAPARIN SODIUM
     Dates: start: 20180321, end: 20180331
  22. DILAUDID [Concomitant]
     Active Substance: HYDROMORPHONE HYDROCHLORIDE
     Indication: Procedural pain
     Dates: start: 20180321, end: 20180328
  23. NEURONTIN [Concomitant]
     Active Substance: GABAPENTIN
     Indication: Neuralgia
     Dates: start: 20180321
  24. HUMALOG [Concomitant]
     Active Substance: INSULIN LISPRO
     Indication: Diabetes mellitus
     Dates: start: 20180321
  25. ACIDOPHILUS [Concomitant]
     Active Substance: LACTOBACILLUS ACIDOPHILUS
     Dates: start: 20180321
  26. LASIX [Concomitant]
     Active Substance: FUROSEMIDE
     Indication: Fluid retention
     Dates: start: 20180321
  27. DECADRON [Concomitant]
     Active Substance: DEXAMETHASONE
     Indication: Prophylaxis
     Route: 048
     Dates: start: 20180103, end: 20180527
  28. DECADRON [Concomitant]
     Active Substance: DEXAMETHASONE
     Route: 042
     Dates: start: 20180105, end: 20180527
  29. TYLENOL [Concomitant]
     Active Substance: ACETAMINOPHEN
     Indication: Procedural pain
     Dates: start: 20180321, end: 20180328
  30. PEPCID [Concomitant]
     Active Substance: FAMOTIDINE
     Indication: Prophylaxis
     Dates: start: 20180105
  31. FENTANYL [Concomitant]
     Active Substance: FENTANYL
     Indication: Procedural pain
     Dates: start: 20180321, end: 20180321
  32. REMERON [Concomitant]
     Active Substance: MIRTAZAPINE
     Dates: start: 20180313
  33. JANUVIA [Concomitant]
     Active Substance: SITAGLIPTIN PHOSPHATE
     Indication: Diabetes mellitus
     Dates: start: 20180221, end: 20180325
  34. TRAZODONE [Concomitant]
     Active Substance: TRAZODONE HYDROCHLORIDE
     Dates: start: 20180321
  35. VERSED [Concomitant]
     Active Substance: MIDAZOLAM HYDROCHLORIDE
     Indication: Procedural pain
     Dates: start: 20180321, end: 20180322
  36. ROBAXIN [Concomitant]
     Active Substance: METHOCARBAMOL
     Dates: start: 20180321, end: 20180328
  37. MIRALAX [Concomitant]
     Active Substance: POLYETHYLENE GLYCOL 3350
     Indication: Constipation
     Dates: start: 20180108, end: 20180211
  38. MIRALAX [Concomitant]
     Active Substance: POLYETHYLENE GLYCOL 3350
     Dates: start: 20180111
  39. MAGNESIUM CHLORIDE [Concomitant]
     Active Substance: MAGNESIUM CHLORIDE
     Indication: Hypomagnesaemia
     Dates: start: 20180216
  40. EMEND [Concomitant]
     Active Substance: APREPITANT
     Dates: start: 20180216, end: 20180216
  41. EMEND [Concomitant]
     Active Substance: APREPITANT
     Dates: start: 20180309, end: 20180309
  42. MAGNESIUM [Concomitant]
     Active Substance: MAGNESIUM
     Dates: start: 20180126

REACTIONS (1)
  - Colitis [Recovered/Resolved]

NARRATIVE: CASE EVENT DATE: 20180221
